FAERS Safety Report 19740462 (Version 1)
Quarter: 2021Q3

REPORT INFORMATION
  Report Type: Spontaneous
  Country: FR (occurrence: FR)
  Receive Date: 20210824
  Receipt Date: 20210824
  Transmission Date: 20211014
  Serious: Yes (Hospitalization)
  Sender: FDA-Public Use
  Company Number: FR-ACCORD-235894

PATIENT
  Age: 61 Year
  Sex: Male
  Weight: 44 kg

DRUGS (23)
  1. OXYCONTIN [Concomitant]
     Active Substance: OXYCODONE HYDROCHLORIDE
  2. GELTIM [Concomitant]
     Active Substance: TIMOLOL MALEATE
  3. PYRIDOXINE [Concomitant]
     Active Substance: PYRIDOXINE
  4. RIFATER [Suspect]
     Active Substance: ISONIAZID\PYRAZINAMIDE\RIFAMPIN
     Indication: TUBERCULOSIS
     Dosage: COATED TABLET
     Dates: start: 20210630, end: 20210715
  5. RIFATER [Suspect]
     Active Substance: ISONIAZID\PYRAZINAMIDE\RIFAMPIN
     Indication: TUBERCULOSIS
     Dosage: COATED TABLET
     Dates: start: 20210420, end: 20210515
  6. PARACETAMOL [Concomitant]
     Active Substance: ACETAMINOPHEN
  7. MOVICOL [Concomitant]
     Active Substance: POLYETHYLENE GLYCOL 3350\POTASSIUM CHLORIDE\SODIUM BICARBONATE\SODIUM CHLORIDE
  8. ONDANSETRON [Concomitant]
     Active Substance: ONDANSETRON
  9. ALIMTA [Suspect]
     Active Substance: PEMETREXED DISODIUM
     Indication: LUNG ADENOCARCINOMA STAGE IV
     Dosage: 500 MG, TREATMENT 3
     Dates: start: 20210625
  10. CARBOPLATIN. [Suspect]
     Active Substance: CARBOPLATIN
     Indication: LUNG ADENOCARCINOMA STAGE IV
     Dosage: TREATMENT 2
     Dates: start: 20210430
  11. ALIMTA [Suspect]
     Active Substance: PEMETREXED DISODIUM
     Indication: LUNG ADENOCARCINOMA STAGE IV
     Dosage: 500 MG, TREATMENT 1
     Dates: start: 20210409
  12. DEXAMBUTOL [Concomitant]
     Active Substance: ETHAMBUTOL HYDROCHLORIDE
     Indication: TUBERCULOSIS
     Dosage: 500 MG FILM?COATED TABLETS
     Dates: start: 20210420, end: 20210515
  13. OXYNORM [Concomitant]
     Active Substance: OXYCODONE HYDROCHLORIDE
  14. ALIMTA [Suspect]
     Active Substance: PEMETREXED DISODIUM
     Indication: LUNG ADENOCARCINOMA STAGE IV
     Dosage: 500 MG, TREATMENT 2
     Dates: start: 20210430
  15. CARBOPLATIN. [Suspect]
     Active Substance: CARBOPLATIN
     Indication: LUNG ADENOCARCINOMA STAGE IV
     Dosage: TREATMENT 1
     Dates: start: 20210409
  16. PEMBROLIZUMAB. [Suspect]
     Active Substance: PEMBROLIZUMAB
     Indication: LUNG ADENOCARCINOMA STAGE IV
     Dosage: MK?3475 50 MG TREATMENT 2
     Dates: start: 20210430
  17. METFORMIN [Concomitant]
     Active Substance: METFORMIN HYDROCHLORIDE
  18. CARBOPLATIN. [Suspect]
     Active Substance: CARBOPLATIN
     Indication: LUNG ADENOCARCINOMA STAGE IV
     Dosage: TREATMENT 3
     Dates: start: 20210625
  19. ATORVASTATIN [Concomitant]
     Active Substance: ATORVASTATIN
  20. COVID?19 MODERNA [Concomitant]
     Dosage: 0.20 MG / ML SUSPENSION FOR INJECTION ??COVID?19 MRNA VACCINE
  21. PEMBROLIZUMAB. [Suspect]
     Active Substance: PEMBROLIZUMAB
     Indication: LUNG ADENOCARCINOMA STAGE IV
     Dosage: MK?3475 50 MG TREATMENT 3
     Dates: start: 20210625
  22. SALBUTAMOL [Concomitant]
     Active Substance: ALBUTEROL
  23. PEMBROLIZUMAB. [Suspect]
     Active Substance: PEMBROLIZUMAB
     Indication: LUNG ADENOCARCINOMA STAGE IV
     Dosage: MK?3475 50 MG TREATMENT 1
     Dates: start: 20210409

REACTIONS (1)
  - Mixed liver injury [Recovering/Resolving]

NARRATIVE: CASE EVENT DATE: 20210514
